FAERS Safety Report 19223702 (Version 1)
Quarter: 2021Q2

REPORT INFORMATION
  Report Type: Spontaneous
  Country: US (occurrence: US)
  Receive Date: 20210505
  Receipt Date: 20210505
  Transmission Date: 20210717
  Serious: No
  Sender: FDA-Public Use
  Company Number: US-ROCHE-2763778

PATIENT
  Sex: Male

DRUGS (3)
  1. ESBRIET [Suspect]
     Active Substance: PIRFENIDONE
     Indication: IDIOPATHIC PULMONARY FIBROSIS
     Dosage: 1 TABLET (267 MG) THRICE DAILY BY MOUTH FOR 7 DAYS
     Route: 048
     Dates: start: 202012
  2. ESBRIET [Suspect]
     Active Substance: PIRFENIDONE
     Dosage: 3 TABLETS (801 MG) THRICE DAILY BY MOUTH FOR 7 DAYS
     Route: 048
  3. ESBRIET [Suspect]
     Active Substance: PIRFENIDONE
     Dosage: 2 TABLETS (534 MG) THRICE DAILY BY MOUTH FOR 7 DAYS
     Route: 048

REACTIONS (2)
  - Peripheral swelling [Unknown]
  - Joint swelling [Unknown]
